FAERS Safety Report 20533020 (Version 5)
Quarter: 2022Q2

REPORT INFORMATION
  Report Type: Spontaneous
  Country: US (occurrence: US)
  Receive Date: 20220301
  Receipt Date: 20220616
  Transmission Date: 20220721
  Serious: Yes (Death)
  Sender: FDA-Public Use
  Company Number: US-PFIZER INC-202200341715

PATIENT
  Age: 76 Year
  Sex: Male
  Weight: 64.863 kg

DRUGS (3)
  1. BRAFTOVI [Suspect]
     Active Substance: ENCORAFENIB
     Indication: Colorectal cancer stage IV
     Dosage: 75 MG, 1X/DAY
     Route: 048
     Dates: start: 2021
  2. BRAFTOVI [Suspect]
     Active Substance: ENCORAFENIB
     Indication: Rectal cancer
     Dosage: 300 MG, 1X/DAY
     Route: 048
     Dates: start: 20220115, end: 20220208
  3. BRAFTOVI [Suspect]
     Active Substance: ENCORAFENIB
     Indication: Colorectal cancer
     Dosage: 300 MG, 1X/DAY
     Route: 048
     Dates: start: 20220115, end: 20220208

REACTIONS (4)
  - Neoplasm progression [Fatal]
  - General physical health deterioration [Unknown]
  - Weight decreased [Unknown]
  - Asthenia [Unknown]

NARRATIVE: CASE EVENT DATE: 20220221
